FAERS Safety Report 25539510 (Version 1)
Quarter: 2025Q3

REPORT INFORMATION
  Report Type: Spontaneous
  Country: AU (occurrence: AU)
  Receive Date: 20250710
  Receipt Date: 20250710
  Transmission Date: 20251020
  Serious: Yes (Other)
  Sender: TAKEDA
  Company Number: None

PATIENT
  Age: 40 Year

DRUGS (1)
  1. VYVANSE [Suspect]
     Active Substance: LISDEXAMFETAMINE DIMESYLATE
     Indication: Attention deficit hyperactivity disorder
     Dosage: 50 MILLIGRAM, QD

REACTIONS (12)
  - Activities of daily living decreased [Not Recovered/Not Resolved]
  - Affect lability [Not Recovered/Not Resolved]
  - Anger [Unknown]
  - Anxiety [Recovering/Resolving]
  - Brain fog [Unknown]
  - Bruxism [Recovering/Resolving]
  - Crying [Unknown]
  - Depersonalisation/derealisation disorder [Recovered/Resolved]
  - Emotional disorder [Recovering/Resolving]
  - Memory impairment [Unknown]
  - Sleep disorder [Not Recovered/Not Resolved]
  - Therapeutic product effect incomplete [Unknown]
